FAERS Safety Report 4834716-X (Version None)
Quarter: 2005Q4

REPORT INFORMATION
  Report Type: 
  Country: None (occurrence: None)
  Receive Date: 20051122
  Receipt Date: 20050707
  Transmission Date: 20060501
  Serious: No
  Sender: FDA-Public Use
  Company Number: US-BRISTOL-MYERS SQUIBB COMPANY-13029087

PATIENT
  Age: 69 Year
  Sex: Male
  Weight: 96 kg

DRUGS (5)
  1. PRAVACHOL [Suspect]
     Indication: BLOOD CHOLESTEROL INCREASED
     Route: 048
  2. PLAVIX [Concomitant]
  3. ASPIRIN [Concomitant]
  4. ZETIA [Concomitant]
  5. SELENIUM SULFIDE [Concomitant]
     Indication: MYOPATHY

REACTIONS (1)
  - NEUROPATHY PERIPHERAL [None]
